FAERS Safety Report 8164616-1 (Version None)
Quarter: 2012Q1

REPORT INFORMATION
  Report Type: 
  Country: None (occurrence: None)
  Receive Date: 20120227
  Receipt Date: 20120214
  Transmission Date: 20120608
  Serious: Yes (Death, Hospitalization)
  Sender: FDA-Public Use
  Company Number: US-BIOGENIDEC-2011BI035195

PATIENT
  Age: 64 Year
  Sex: Female

DRUGS (1)
  1. TYSABRI [Suspect]
     Indication: MULTIPLE SCLEROSIS
     Route: 042
     Dates: start: 20101115, end: 20110719

REACTIONS (8)
  - CYSTITIS [None]
  - OVARIAN CANCER [None]
  - GASTRIC CANCER [None]
  - INTESTINAL MASS [None]
  - COLON CANCER [None]
  - BLOOD URINE PRESENT [None]
  - POLLAKIURIA [None]
  - URINARY BLADDER SARCOMA [None]
